FAERS Safety Report 4748886-5 (Version None)
Quarter: 2005Q3

REPORT INFORMATION
  Report Type: 
  Country: None (occurrence: None)
  Receive Date: 20050817
  Receipt Date: 20050804
  Transmission Date: 20060218
  Serious: Yes (Hospitalization, Other)
  Sender: FDA-Public Use
  Company Number: 2005111947

PATIENT
  Age: 92 Year
  Sex: Male

DRUGS (5)
  1. NEURONTIN [Suspect]
     Indication: PAIN
     Dosage: 300 MG (300 MG, 1 IN 1 D), ORAL
     Route: 048
  2. ACETYLSALICYLATE LYSINE (ACETYLSALICYLATE LYSINE) [Concomitant]
  3. RABEPRAZOLE SODIUM [Concomitant]
  4. FUROSEMIDE [Concomitant]
  5. CARBIDOPA (CARBIDOPA) [Concomitant]

REACTIONS (3)
  - ENCEPHALOPATHY [None]
  - MYOCLONUS [None]
  - RENAL FAILURE [None]
